FAERS Safety Report 16234693 (Version 1)
Quarter: 2019Q2

REPORT INFORMATION
  Report Type: Spontaneous
  Country: ES (occurrence: ES)
  Receive Date: 20190424
  Receipt Date: 20190424
  Transmission Date: 20190711
  Serious: Yes (Hospitalization)
  Sender: FDA-Public Use
  Company Number: ES-MYLANLABS-2019M1037159

PATIENT
  Age: 56 Year
  Sex: Male

DRUGS (10)
  1. SIMVASTATINA [Concomitant]
     Active Substance: SIMVASTATIN
  2. DELTIUS [Concomitant]
     Active Substance: CHOLECALCIFEROL
  3. PLENUR                             /00033702/ [Concomitant]
     Active Substance: LITHIUM CARBONATE
  4. LEVOFLOXACIN. [Suspect]
     Active Substance: LEVOFLOXACIN
     Indication: BRONCHITIS
     Dosage: 500 MILLIGRAM, 24 HOURS
     Route: 048
     Dates: start: 20181108, end: 20181108
  5. RISPERDAL [Concomitant]
     Active Substance: RISPERIDONE
  6. LINAGLIPTINA [Concomitant]
     Active Substance: LINAGLIPTIN
  7. EUTIROX [Concomitant]
     Active Substance: LEVOTHYROXINE SODIUM
  8. ALOPURINOL [Concomitant]
     Active Substance: ALLOPURINOL
  9. SEROQUEL [Concomitant]
     Active Substance: QUETIAPINE FUMARATE
  10. BENICAR [Concomitant]
     Active Substance: OLMESARTAN MEDOXOMIL

REACTIONS (2)
  - Dermatitis exfoliative generalised [Unknown]
  - Burning sensation [Unknown]

NARRATIVE: CASE EVENT DATE: 20181108
